FAERS Safety Report 18780457 (Version 1)
Quarter: 2021Q1

REPORT INFORMATION
  Report Type: Spontaneous
  Country: US (occurrence: US)
  Receive Date: 20210125
  Receipt Date: 20210125
  Transmission Date: 20210419
  Serious: Yes (Hospitalization, Other)
  Sender: FDA-Public Use
  Company Number: US-ALVOGEN-2021-ALVOGEN-116239

PATIENT
  Age: 65 Year
  Sex: Female

DRUGS (1)
  1. CLINDAMYCIN. [Suspect]
     Active Substance: CLINDAMYCIN
     Indication: ANTIBIOTIC THERAPY

REACTIONS (7)
  - Ophthalmic vein thrombosis [Recovered/Resolved]
  - Pathogen resistance [Unknown]
  - Lemierre syndrome [Recovered/Resolved]
  - Cavernous sinus thrombosis [Recovered/Resolved]
  - Osteomyelitis [Recovered/Resolved]
  - Subdural abscess [Recovered/Resolved]
  - Drug ineffective [Unknown]
